FAERS Safety Report 19821327 (Version 1)
Quarter: 2021Q3

REPORT INFORMATION
  Report Type: Spontaneous
  Country: US (occurrence: US)
  Receive Date: 20210913
  Receipt Date: 20210913
  Transmission Date: 20211014
  Serious: Yes (Life-Threatening, Hospitalization)
  Sender: FDA-Public Use
  Company Number: US-MYLANLABS-2021M1060281

PATIENT
  Sex: Female

DRUGS (1)
  1. KETOROLAC [Suspect]
     Active Substance: KETOROLAC TROMETHAMINE
     Indication: PAIN
     Dosage: AN IM DOSE OF KETOROLAC WAS ADMINISTERED
     Route: 030

REACTIONS (2)
  - Acute respiratory failure [Recovering/Resolving]
  - Drug hypersensitivity [Recovering/Resolving]
